FAERS Safety Report 5499211-6 (Version None)
Quarter: 2007Q4

REPORT INFORMATION
  Report Type: 
  Country: None (occurrence: None)
  Receive Date: 20071026
  Receipt Date: 20071016
  Transmission Date: 20080405
  Serious: Yes (Other)
  Sender: FDA-Public Use
  Company Number: CA-AVENTIS-200719709GDDC

PATIENT
  Age: 12 Year
  Sex: Female
  Weight: 45 kg

DRUGS (1)
  1. ALLEGRA-D                          /01413301/ [Suspect]
     Indication: SEASONAL ALLERGY
     Dosage: DOSE QUANTITY: 1
     Route: 048
     Dates: start: 20070801, end: 20070912

REACTIONS (2)
  - ASTIGMATISM [None]
  - VISUAL DISTURBANCE [None]
